FAERS Safety Report 4811448-5 (Version None)
Quarter: 2005Q4

REPORT INFORMATION
  Report Type: 
  Country: None (occurrence: None)
  Receive Date: 20051027
  Receipt Date: 20051014
  Transmission Date: 20060501
  Serious: Yes (Hospitalization)
  Sender: FDA-Public Use
  Company Number: HQWYE079118OCT05

PATIENT
  Age: 46 Year
  Sex: Male
  Weight: 77 kg

DRUGS (6)
  1. ENBREL [Suspect]
     Indication: RHEUMATOID ARTHRITIS
     Route: 058
     Dates: start: 20050601
  2. COUMADIN [Concomitant]
     Indication: DEEP VEIN THROMBOSIS
     Dosage: 4 MG TUESDAYS, THURSDAYS, SATURDAYS AND SUNDAYS
     Dates: end: 20051013
  3. COUMADIN [Concomitant]
     Dosage: 8 MG MONDAYS, WEDNESDAYS AND FRIDAYS
  4. CAPOTEN [Concomitant]
     Indication: HYPERTENSION
     Route: 048
  5. SPIRONOLACTONE [Concomitant]
     Indication: HYPERTENSION
     Route: 048
  6. LASIX [Concomitant]
     Indication: HYPERTENSION
     Route: 048

REACTIONS (1)
  - INTERNATIONAL NORMALISED RATIO DECREASED [None]
